FAERS Safety Report 12240226 (Version 1)
Quarter: 2016Q2

REPORT INFORMATION
  Report Type: Spontaneous
  Country: IE (occurrence: IE)
  Receive Date: 20160405
  Receipt Date: 20160405
  Transmission Date: 20160815
  Serious: Yes (Other)
  Sender: FDA-Public Use
  Company Number: IE-PFIZER INC-2016187682

PATIENT
  Sex: Female

DRUGS (1)
  1. DETRUSITOL [Suspect]
     Active Substance: TOLTERODINE TARTRATE
     Dosage: UNK

REACTIONS (2)
  - Coeliac disease [Unknown]
  - Condition aggravated [Unknown]
